FAERS Safety Report 21972789 (Version 5)
Quarter: 2023Q2

REPORT INFORMATION
  Report Type: Spontaneous
  Country: IN (occurrence: IN)
  Receive Date: 20230209
  Receipt Date: 20230427
  Transmission Date: 20230722
  Serious: Yes (Other)
  Sender: FDA-Public Use
  Company Number: IN-PFIZER INC-PV202300005830

PATIENT
  Age: 46 Year
  Sex: Female

DRUGS (7)
  1. PALBOCICLIB [Suspect]
     Active Substance: PALBOCICLIB
     Indication: Breast cancer metastatic
     Dosage: 100 MG, DAILY (1 TABLET X21 DAYS ON, 7 DAYS OFF)
     Route: 048
  2. ZOLEDRONIC ACID [Concomitant]
     Active Substance: ZOLEDRONIC ACID
     Dosage: 4 MG IN 100 ML NS
     Route: 041
  3. LETROZOLE [Concomitant]
     Active Substance: LETROZOLE
     Dosage: 2.5 MG, HS OD (ONCE A DAY AT NIGHT), TO CONTINUE
  4. CALCIMAX D3 [CALCIUM CITRATE;COLECALCIFEROL] [Concomitant]
     Dosage: 1 DF, DAILY
     Route: 048
  5. PYRIGESIC [Concomitant]
     Dosage: 1 G, 1 TABLET PRN
     Route: 048
  6. SUPRACAL [CALCIUM] [Concomitant]
     Dosage: 1 TABLET AFTER FOOD OD (ONCE A DAY), TO CONTINUE
     Route: 048
  7. SODIUM CHLORIDE [Concomitant]
     Active Substance: SODIUM CHLORIDE
     Dosage: 100 ML
     Route: 041

REACTIONS (3)
  - Neutropenia [Unknown]
  - Type 2 diabetes mellitus [Unknown]
  - Haemoglobin decreased [Unknown]
